FAERS Safety Report 6108594-5 (Version None)
Quarter: 2009Q1

REPORT INFORMATION
  Report Type: 
  Country: None (occurrence: None)
  Receive Date: 20090309
  Receipt Date: 20090304
  Transmission Date: 20090719
  Serious: Yes (Hospitalization, Other)
  Sender: FDA-Public Use
  Company Number: FR-GILEAD-2009-0020693

PATIENT
  Sex: Male

DRUGS (2)
  1. TRUVADA [Suspect]
     Indication: HIV INFECTION
     Route: 048
     Dates: start: 20080721, end: 20080808
  2. SUSTIVA [Suspect]
     Dates: start: 20080721

REACTIONS (3)
  - PYREXIA [None]
  - RENAL FAILURE [None]
  - RENAL TUBULAR DISORDER [None]
